FAERS Safety Report 5009800-0 (Version None)
Quarter: 2006Q2

REPORT INFORMATION
  Report Type: 
  Country: None (occurrence: None)
  Receive Date: 20060522
  Receipt Date: 20060522
  Transmission Date: 20061013
  Serious: Yes (Other)
  Sender: FDA-Public Use
  Company Number: None

PATIENT
  Age: 85 Year
  Sex: Female

DRUGS (2)
  1. LEVOFLOXACIN [Suspect]
     Dosage: 500 MG   QDAY   PO
     Route: 048
  2. LEVOFLOXACIN [Suspect]
     Dosage: 250 MG   QDAY   PO
     Route: 048

REACTIONS (7)
  - CARDIOMYOPATHY [None]
  - CONDITION AGGRAVATED [None]
  - DRUG HYPERSENSITIVITY [None]
  - GENERAL PHYSICAL HEALTH DETERIORATION [None]
  - LEUKOCYTOCLASTIC VASCULITIS [None]
  - RENAL IMPAIRMENT [None]
  - RESPIRATORY FAILURE [None]
